FAERS Safety Report 25518482 (Version 4)
Quarter: 2025Q3

REPORT INFORMATION
  Report Type: Spontaneous
  Country: US (occurrence: US)
  Receive Date: 20250704
  Receipt Date: 20250910
  Transmission Date: 20251020
  Serious: Yes (Hospitalization)
  Sender: CHIESI
  Company Number: US-CHIESI-2025CHF04561

PATIENT
  Age: 26 Year
  Sex: Male

DRUGS (3)
  1. ELFABRIO [Suspect]
     Active Substance: PEGUNIGALSIDASE ALFA-IWXJ
     Indication: Fabry^s disease
     Dosage: 60 MILLIGRAM, QOW
     Route: 042
     Dates: start: 2021
  2. ELFABRIO [Suspect]
     Active Substance: PEGUNIGALSIDASE ALFA-IWXJ
     Dosage: 60 MILLIGRAM, QOW
     Route: 042
     Dates: start: 20240410
  3. PREDNISONE [Concomitant]
     Active Substance: PREDNISONE
     Indication: Renal disorder

REACTIONS (3)
  - Kidney transplant rejection [Recovering/Resolving]
  - Product dose omission issue [Recovered/Resolved]
  - Product dose omission issue [Not Recovered/Not Resolved]

NARRATIVE: CASE EVENT DATE: 20250401
